FAERS Safety Report 19734972 (Version 1)
Quarter: 2021Q3

REPORT INFORMATION
  Report Type: Report from Study
  Country: US (occurrence: US)
  Receive Date: 20210823
  Receipt Date: 20210823
  Transmission Date: 20211014
  Serious: Yes (Disabling, Other)
  Sender: FDA-Public Use
  Company Number: US-SA-2020SA085394

PATIENT
  Age: 47 Year
  Sex: Female

DRUGS (1)
  1. TERIFLUNOMIDE. [Suspect]
     Active Substance: TERIFLUNOMIDE
     Indication: MULTIPLE SCLEROSIS
     Dosage: 7 MG, QD
     Route: 048
     Dates: start: 20191015, end: 202107

REACTIONS (10)
  - Vitamin D decreased [Unknown]
  - COVID-19 [Unknown]
  - Multiple sclerosis [Unknown]
  - Gait disturbance [Unknown]
  - Hemiparesis [Unknown]
  - Gait disturbance [Not Recovered/Not Resolved]
  - Vitamin B complex deficiency [Unknown]
  - Product dose omission issue [Unknown]
  - Disability [Unknown]
  - Cervical vertebral fracture [Unknown]

NARRATIVE: CASE EVENT DATE: 2020
